FAERS Safety Report 7747289-9 (Version None)
Quarter: 2011Q3

REPORT INFORMATION
  Report Type: 
  Country: None (occurrence: None)
  Receive Date: 20110913
  Receipt Date: 20110908
  Transmission Date: 20111222
  Serious: Yes (Hospitalization, Other)
  Sender: FDA-Public Use
  Company Number: US-MERCK-1109USA00296

PATIENT
  Sex: Female

DRUGS (2)
  1. FOSAMAX [Suspect]
     Route: 048
     Dates: start: 19960101, end: 20100101
  2. FOSAMAX [Suspect]
     Route: 048
     Dates: start: 19960101, end: 20100101

REACTIONS (2)
  - FEMUR FRACTURE [None]
  - PULMONARY EMBOLISM [None]
